FAERS Safety Report 16579499 (Version 5)
Quarter: 2020Q2

REPORT INFORMATION
  Report Type: Report from Study
  Country: None (occurrence: US)
  Receive Date: 20190716
  Receipt Date: 20200401
  Transmission Date: 20200713
  Serious: Yes (Hospitalization, Other)
  Sender: FDA-Public Use
  Company Number: US-ABBVIE-19K-163-2851030-00

PATIENT
  Age: 81 Year
  Sex: Female
  Weight: 76.27 kg

DRUGS (3)
  1. LEFLUNOMIDE. [Concomitant]
     Active Substance: LEFLUNOMIDE
     Indication: OSTEOARTHRITIS
  2. HUMIRA [Suspect]
     Active Substance: ADALIMUMAB
     Indication: RHEUMATOID ARTHRITIS
     Route: 058
     Dates: start: 2014, end: 20190714
  3. HUMIRA [Suspect]
     Active Substance: ADALIMUMAB
     Indication: RHEUMATOID ARTHRITIS
     Route: 058
     Dates: start: 20190715

REACTIONS (13)
  - Asthenia [Not Recovered/Not Resolved]
  - Cardiac valve disease [Recovering/Resolving]
  - Chest pain [Recovering/Resolving]
  - Fall [Recovering/Resolving]
  - Joint noise [Recovering/Resolving]
  - Cardiac disorder [Recovering/Resolving]
  - Gait disturbance [Not Recovered/Not Resolved]
  - Skin discolouration [Recovering/Resolving]
  - Coronary artery occlusion [Recovering/Resolving]
  - Osteoarthritis [Unknown]
  - Blood sodium increased [Unknown]
  - Haemoglobin decreased [Recovered/Resolved]
  - Injection site pain [Recovered/Resolved]

NARRATIVE: CASE EVENT DATE: 2019
